FAERS Safety Report 5758505-7 (Version None)
Quarter: 2008Q2

REPORT INFORMATION
  Report Type: 
  Country: None (occurrence: None)
  Receive Date: 20080604
  Receipt Date: 20080528
  Transmission Date: 20081010
  Serious: Yes (Other)
  Sender: FDA-Public Use
  Company Number: A0729954A

PATIENT
  Age: 70 Year
  Sex: Female

DRUGS (2)
  1. ADVAIR DISKUS 100/50 [Suspect]
     Indication: BRONCHIAL DISORDER
     Dosage: 1PUFF PER DAY
     Route: 055
     Dates: start: 20080301
  2. DETROL [Concomitant]

REACTIONS (2)
  - CATARACT [None]
  - DRY THROAT [None]
